FAERS Safety Report 12284965 (Version 1)
Quarter: 2016Q2

REPORT INFORMATION
  Report Type: Spontaneous
  Country: US (occurrence: US)
  Receive Date: 20160420
  Receipt Date: 20160420
  Transmission Date: 20160815
  Serious: Yes (Hospitalization)
  Sender: FDA-Public Use
  Company Number: US-BEH-2016061336

PATIENT
  Age: 60 Year
  Sex: Female
  Weight: 103 kg

DRUGS (28)
  1. HIZENTRA [Suspect]
     Active Substance: HUMAN IMMUNOGLOBULIN G
     Dosage: STRENGTH AND FORMULATION: 2GM/4GM
     Route: 058
  2. HIZENTRA [Suspect]
     Active Substance: HUMAN IMMUNOGLOBULIN G
     Dates: start: 20150518
  3. HYZAAR [Concomitant]
     Active Substance: HYDROCHLOROTHIAZIDE\LOSARTAN POTASSIUM
  4. SINGULAIR [Concomitant]
     Active Substance: MONTELUKAST SODIUM
  5. LMX [Concomitant]
     Active Substance: LIDOCAINE
  6. SYNTHROID [Concomitant]
     Active Substance: LEVOTHYROXINE SODIUM
  7. EFUDEX [Concomitant]
     Active Substance: FLUOROURACIL
  8. PHENERGAN [Concomitant]
     Active Substance: PROMETHAZINE HYDROCHLORIDE
  9. ACETAMINOPHEN. [Concomitant]
     Active Substance: ACETAMINOPHEN
  10. CARVEDILOL. [Concomitant]
     Active Substance: CARVEDILOL
  11. CELEBREX [Concomitant]
     Active Substance: CELECOXIB
  12. VITAMIN D [Concomitant]
     Active Substance: CHOLECALCIFEROL
  13. HIZENTRA [Suspect]
     Active Substance: HUMAN IMMUNOGLOBULIN G
     Indication: IMMUNODEFICIENCY COMMON VARIABLE
     Dosage: STRENGTH AND FORMULATION: 2GM/4GM
     Route: 058
  14. CEFTIN [Concomitant]
     Active Substance: CEFUROXIME AXETIL
  15. NORCO [Concomitant]
     Active Substance: ACETAMINOPHEN\HYDROCODONE BITARTRATE
  16. TUSSIONEX PENNKINETIC [Concomitant]
     Active Substance: CHLORPHENIRAMINE\HYDROCODONE
  17. OMEPRAZOLE. [Concomitant]
     Active Substance: OMEPRAZOLE
  18. GABAPENTIN. [Concomitant]
     Active Substance: GABAPENTIN
  19. DIPHENHYDRAMINE. [Concomitant]
     Active Substance: DIPHENHYDRAMINE
  20. EPIPEN [Concomitant]
     Active Substance: EPINEPHRINE
  21. CYMBALTA [Concomitant]
     Active Substance: DULOXETINE HYDROCHLORIDE
  22. CRESTOR [Concomitant]
     Active Substance: ROSUVASTATIN CALCIUM
  23. BENAZEPRIL [Concomitant]
     Active Substance: BENAZEPRIL HYDROCHLORIDE
  24. PROAIR HFA [Concomitant]
     Active Substance: ALBUTEROL SULFATE
  25. ADVAIR HFA [Concomitant]
     Active Substance: FLUTICASONE PROPIONATE\SALMETEROL XINAFOATE
  26. FLUOCINONIDE. [Concomitant]
     Active Substance: FLUOCINONIDE
  27. CYCANOCOBALAMIN [Concomitant]
  28. METHOCARBAMOL. [Concomitant]
     Active Substance: METHOCARBAMOL

REACTIONS (1)
  - Spinal operation [Unknown]

NARRATIVE: CASE EVENT DATE: 20160401
